FAERS Safety Report 8623621-9 (Version None)
Quarter: 2012Q3

REPORT INFORMATION
  Report Type: 
  Country: None (occurrence: None)
  Receive Date: 20120827
  Receipt Date: 20120814
  Transmission Date: 20120928
  Serious: Yes (Other)
  Sender: FDA-Public Use
  Company Number: US-VERTEX PHARMACEUTICAL INC.-2012-019758

PATIENT
  Sex: Female

DRUGS (3)
  1. INTERFERON [Suspect]
     Indication: HEPATITIS C
  2. INCIVEK [Suspect]
     Indication: HEPATITIS C
     Route: 048
  3. RIBAVIRIN [Suspect]
     Indication: HEPATITIS C

REACTIONS (1)
  - ABSCESS LIMB [None]
